FAERS Safety Report 7962061 (Version 6)
Quarter: 2012Q4

REPORT INFORMATION
  Report Type: 
  Country: CA (occurrence: CA)
  Receive Date: 20110526
  Receipt Date: 20120926
  Transmission Date: 20130627
  Serious: Yes (Other)
  Sender: FDA-Public Use
  Company Number: CA-NAPPMUNDI-CAN-2009-0000983

PATIENT
  Age: 35 Year
  Sex: Male

DRUGS (6)
  1. OXYCONTIN TABLETS [Suspect]
     Indication: PRODUCT USED FOR UNKNOWN INDICATION
     Dosage: UNK UNK, daily
     Route: 065
  2. OXYCONTIN TABLETS [Suspect]
     Indication: PRODUCT USED FOR UNKNOWN INDICATION
     Dosage: 20 tablet, daily
     Route: 065
  3. PERCOCET [Suspect]
     Indication: PRODUCT USED FOR UNKNOWN INDICATION
  4. COCAINE [Suspect]
     Indication: PRODUCT USED FOR UNKNOWN INDICATION
  5. ALCOHOL [Suspect]
     Indication: PRODUCT USED FOR UNKNOWN INDICATION
  6. CANNABIS SATIVA SUBSP. INDICA TOP [Suspect]
     Indication: PRODUCT USED FOR UNKNOWN INDICATION
     Route: 055

REACTIONS (16)
  - Drug dependence [Unknown]
  - Substance abuse [Unknown]
  - Overdose [Unknown]
  - Suicidal ideation [Unknown]
  - Depression [Unknown]
  - General physical health deterioration [Unknown]
  - Drug withdrawal syndrome [Unknown]
  - Cyanosis [Unknown]
  - Euphoric mood [Unknown]
  - Social avoidant behaviour [Unknown]
  - Overweight [Unknown]
  - Pallor [Unknown]
  - Pain [Unknown]
  - Hypoaesthesia [Unknown]
  - Emotional distress [Unknown]
  - Asthenia [Unknown]
